FAERS Safety Report 15986559 (Version 1)
Quarter: 2019Q1

REPORT INFORMATION
  Report Type: Spontaneous
  Country: CA (occurrence: CA)
  Receive Date: 20190220
  Receipt Date: 20190220
  Transmission Date: 20190418
  Serious: Yes (Other)
  Sender: FDA-Public Use
  Company Number: CA-TEVA-2019-CA-1012414

PATIENT
  Age: 76 Year
  Sex: Female
  Weight: 72 kg

DRUGS (4)
  1. CALCIUM [Concomitant]
     Active Substance: CALCIUM
  2. ACETYLSALICYLIC ACID [Concomitant]
     Active Substance: ASPIRIN
  3. INDAPAMIDE. [Concomitant]
     Active Substance: INDAPAMIDE
  4. ACT OLMESARTAN HCT [Suspect]
     Active Substance: HYDROCHLOROTHIAZIDE\OLMESARTAN MEDOXOMIL
     Route: 048

REACTIONS (8)
  - Abnormal dreams [Recovered/Resolved]
  - Insomnia [Recovered/Resolved]
  - Blood pressure systolic abnormal [Recovered/Resolved]
  - Condition aggravated [Recovered/Resolved]
  - Product substitution issue [Recovered/Resolved]
  - Discomfort [Recovered/Resolved]
  - Nightmare [Recovered/Resolved]
  - Burning mouth syndrome [Recovered/Resolved]
